FAERS Safety Report 15310041 (Version 1)
Quarter: 2018Q3

REPORT INFORMATION
  Report Type: Spontaneous
  Country: US (occurrence: US)
  Receive Date: 20180823
  Receipt Date: 20180823
  Transmission Date: 20181010
  Serious: No
  Sender: FDA-Public Use
  Company Number: US-BAYER-2018-156781

PATIENT
  Age: 50 Year
  Sex: Male
  Weight: 78 kg

DRUGS (1)
  1. MIRALAX [Suspect]
     Active Substance: POLYETHYLENE GLYCOL 3350
     Indication: GASTROINTESTINAL DISORDER
     Dosage: 17G IN 4?8 OUNCES OF BEVERAGE DOSE
     Route: 048
     Dates: start: 201808

REACTIONS (3)
  - Dyspepsia [Recovered/Resolved]
  - Vomiting [Recovered/Resolved]
  - Foreign body in respiratory tract [Unknown]

NARRATIVE: CASE EVENT DATE: 20180815
